FAERS Safety Report 16843451 (Version 3)
Quarter: 2021Q3

REPORT INFORMATION
  Report Type: Spontaneous
  Country: US (occurrence: US)
  Receive Date: 20190924
  Receipt Date: 20210914
  Transmission Date: 20211014
  Serious: Yes (Other)
  Sender: FDA-Public Use
  Company Number: US-GILEAD-2019-0429705

PATIENT
  Age: 62 Year
  Sex: Male
  Weight: 133.79 kg

DRUGS (39)
  1. VIREAD [Suspect]
     Active Substance: TENOFOVIR DISOPROXIL FUMARATE
     Indication: HIV INFECTION
     Dosage: UNK
     Route: 048
     Dates: start: 2002, end: 2005
  2. COUMADIN [Concomitant]
     Active Substance: WARFARIN SODIUM
  3. PHENTERMINE. [Concomitant]
     Active Substance: PHENTERMINE
  4. CEFDINIR. [Concomitant]
     Active Substance: CEFDINIR
  5. CEPHALEXIN [CEFALEXIN] [Concomitant]
     Active Substance: CEPHALEXIN
  6. GUAIFENESIN. [Concomitant]
     Active Substance: GUAIFENESIN
  7. PROVIGIL [Concomitant]
     Active Substance: MODAFINIL
  8. CLARITIN [CLARITHROMYCIN] [Concomitant]
     Active Substance: CLARITHROMYCIN
  9. OMEPRAZOLE. [Concomitant]
     Active Substance: OMEPRAZOLE
  10. PANTOPRAZOLE [Concomitant]
     Active Substance: PANTOPRAZOLE
  11. NEXIUM [Concomitant]
     Active Substance: ESOMEPRAZOLE MAGNESIUM
  12. PREZISTA [Concomitant]
     Active Substance: DARUNAVIR ETHANOLATE
  13. ATORVASTATIN [Concomitant]
     Active Substance: ATORVASTATIN
  14. AZITHROMYCIN ANHYDROUS. [Concomitant]
     Active Substance: AZITHROMYCIN ANHYDROUS
  15. HYDROCODONE/ACETAMINOPHEN [Concomitant]
     Active Substance: ACETAMINOPHEN\HYDROCODONE
  16. CLARITIN [Concomitant]
     Active Substance: LORATADINE
  17. EPZICOM [Concomitant]
     Active Substance: ABACAVIR SULFATE\LAMIVUDINE
  18. KALETRA [Concomitant]
     Active Substance: LOPINAVIR\RITONAVIR
  19. SUSTIVA [Concomitant]
     Active Substance: EFAVIRENZ
  20. VALACYCLOVIR HCL [Concomitant]
     Active Substance: VALACYCLOVIR HYDROCHLORIDE
  21. SMZ?TMP [Concomitant]
     Active Substance: SULFAMETHOXAZOLE\TRIMETHOPRIM
  22. BIKTARVY [Concomitant]
     Active Substance: BICTEGRAVIR SODIUM\EMTRICITABINE\TENOFOVIR ALAFENAMIDE FUMARATE
  23. CRESTOR [Concomitant]
     Active Substance: ROSUVASTATIN CALCIUM
  24. SIMVASTATIN. [Concomitant]
     Active Substance: SIMVASTATIN
  25. ANDRODERM [Concomitant]
     Active Substance: TESTOSTERONE
  26. TRUVADA [Suspect]
     Active Substance: EMTRICITABINE\TENOFOVIR DISOPROXIL FUMARATE
     Indication: HIV INFECTION
     Dosage: UNK
     Route: 048
     Dates: start: 2005, end: 20140714
  27. ROSUVASTATIN. [Concomitant]
     Active Substance: ROSUVASTATIN
  28. PRAVASTATIN. [Concomitant]
     Active Substance: PRAVASTATIN
  29. DIPHENHYDRAMINE. [Concomitant]
     Active Substance: DIPHENHYDRAMINE
  30. LORATADINE. [Concomitant]
     Active Substance: LORATADINE
  31. WARFARIN [Concomitant]
     Active Substance: WARFARIN
  32. DEXTROAMPHETAMINE [DEXAMFETAMINE] [Concomitant]
     Active Substance: DEXTROAMPHETAMINE
  33. HAVRIX [Concomitant]
     Active Substance: HEPATITIS A VIRUS STRAIN HM175 ANTIGEN (FORMALDEHYDE INACTIVATED)
  34. MODAFINIL. [Concomitant]
     Active Substance: MODAFINIL
  35. NOVIR [ENTECAVIR] [Concomitant]
     Active Substance: ENTECAVIR
  36. REYATAZ [Concomitant]
     Active Substance: ATAZANAVIR SULFATE
  37. AMOXICILLIN. [Concomitant]
     Active Substance: AMOXICILLIN
  38. CETRIZINE [Concomitant]
     Active Substance: CETIRIZINE HYDROCHLORIDE
  39. LIPITOR [Concomitant]
     Active Substance: ATORVASTATIN CALCIUM

REACTIONS (14)
  - Emotional distress [Not Recovered/Not Resolved]
  - Anxiety [Not Recovered/Not Resolved]
  - Weight increased [Not Recovered/Not Resolved]
  - Quality of life decreased [Not Recovered/Not Resolved]
  - Anhedonia [Not Recovered/Not Resolved]
  - Osteoporosis [Not Recovered/Not Resolved]
  - Loss of personal independence in daily activities [Not Recovered/Not Resolved]
  - Fracture [Not Recovered/Not Resolved]
  - Osteopenia [Not Recovered/Not Resolved]
  - Spinal compression fracture [Not Recovered/Not Resolved]
  - Kyphosis [Not Recovered/Not Resolved]
  - Decreased activity [Not Recovered/Not Resolved]
  - Pain [Not Recovered/Not Resolved]
  - Mobility decreased [Not Recovered/Not Resolved]

NARRATIVE: CASE EVENT DATE: 20100513
